FAERS Safety Report 9245534 (Version 1)
Quarter: 2013Q1

REPORT INFORMATION
  Report Type: Spontaneous
  Country: US (occurrence: None)
  Receive Date: 20121130
  Receipt Date: 20121130
  Transmission Date: 20140127
  Serious: No
  Sender: FDA-Public Use
  Company Number: 1201USA03262

PATIENT
  Age: 79 Year
  Sex: Female

DRUGS (9)
  1. FOSAMAX [Suspect]
     Route: 048
  2. LEVTIROXINA S.O (LEVOTHYROXINE SODIUM) [Concomitant]
  3. HYDROCHLOROTHIAZIDE (+) TRIAMTERENE [Concomitant]
  4. NASONEX (MOMETASONE FUROATE) [Concomitant]
  5. LOSARTAN POTASSIUM TABLETS [Concomitant]
  6. IPRATROPIUM BROMIDE [Concomitant]
  7. FLUCONAZOLE (FLUCONAZOLE) [Concomitant]
  8. METOPROLOL SUCCINATE [Concomitant]
  9. AMLODIPINE [Concomitant]

REACTIONS (7)
  - Incontinence [None]
  - Diarrhoea [None]
  - Abdominal discomfort [None]
  - Fatigue [None]
  - Dyspepsia [None]
  - Decreased appetite [None]
  - Overdose [None]
